FAERS Safety Report 18688593 (Version 1)
Quarter: 2020Q4

REPORT INFORMATION
  Report Type: Spontaneous
  Country: US (occurrence: US)
  Receive Date: 20201231
  Receipt Date: 20201231
  Transmission Date: 20210114
  Serious: No
  Sender: FDA-Public Use
  Company Number: None

PATIENT
  Age: 58 Year
  Sex: Female
  Weight: 110 kg

DRUGS (14)
  1. REMDESIVIR. [Suspect]
     Active Substance: REMDESIVIR
     Indication: COVID-19
     Dosage: ?          OTHER FREQUENCY:LOADING DOSE - ONC;?
     Route: 041
     Dates: start: 20201224, end: 20201225
  2. LORATIDINE [Concomitant]
     Active Substance: LORATADINE
  3. WARFARIN [Concomitant]
     Active Substance: WARFARIN
  4. FLUTICASONE PROPIONATE NASAL [Concomitant]
     Active Substance: FLUTICASONE PROPIONATE
  5. SERTRALINE [Concomitant]
     Active Substance: SERTRALINE HYDROCHLORIDE
  6. GABAPENTIN. [Concomitant]
     Active Substance: GABAPENTIN
  7. IBUPROFEN. [Concomitant]
     Active Substance: IBUPROFEN
  8. ALBUTEROL HFA [Concomitant]
     Active Substance: ALBUTEROL SULFATE
  9. ATORVASTATIN [Concomitant]
     Active Substance: ATORVASTATIN
  10. ARIPIPRAZOLE. [Concomitant]
     Active Substance: ARIPIPRAZOLE
  11. ANTIOX [Concomitant]
  12. TRADJENTA [Concomitant]
     Active Substance: LINAGLIPTIN
  13. METFORMIN [Concomitant]
     Active Substance: METFORMIN HYDROCHLORIDE
  14. LISINOPRIL. [Concomitant]
     Active Substance: LISINOPRIL

REACTIONS (2)
  - Prothrombin time prolonged [None]
  - International normalised ratio increased [None]

NARRATIVE: CASE EVENT DATE: 20201225
